FAERS Safety Report 26155539 (Version 1)
Quarter: 2025Q4

REPORT INFORMATION
  Report Type: Spontaneous
  Country: EU (occurrence: EU)
  Receive Date: 20251215
  Receipt Date: 20251215
  Transmission Date: 20260118
  Serious: Yes (Other)
  Sender: ALKEM
  Company Number: EU-ALKEM LABORATORIES LIMITED-FR-ALKEM-2024-26848

PATIENT
  Age: 51 Year
  Sex: Female

DRUGS (1)
  1. TACROLIMUS [Suspect]
     Active Substance: TACROLIMUS
     Indication: Immunosuppressant drug therapy
     Dosage: UNK
     Route: 065

REACTIONS (7)
  - Gastrointestinal perforation [Unknown]
  - Liver abscess [Unknown]
  - Infective aneurysm [Recovered/Resolved]
  - Peritonitis [Unknown]
  - Sepsis [Unknown]
  - Candida infection [Unknown]
  - Fungal infection [Unknown]
